FAERS Safety Report 11215247 (Version 2)
Quarter: 2015Q3

REPORT INFORMATION
  Report Type: Spontaneous
  Country: US (occurrence: US)
  Receive Date: 20150624
  Receipt Date: 20150702
  Transmission Date: 20151125
  Serious: No
  Sender: FDA-Public Use
  Company Number: US-PFIZER INC-2015203883

PATIENT
  Age: 17 Year
  Sex: Female
  Weight: 79.37 kg

DRUGS (1)
  1. LYRICA [Suspect]
     Active Substance: PREGABALIN
     Indication: COMPLEX REGIONAL PAIN SYNDROME
     Dosage: 50 MG, 3X/DAY
     Route: 048

REACTIONS (2)
  - Product use issue [Unknown]
  - Antiphospholipid antibodies positive [Unknown]
